FAERS Safety Report 11689590 (Version 1)
Quarter: 2015Q4

REPORT INFORMATION
  Report Type: Report from Study
  Country: US (occurrence: US)
  Receive Date: 20151102
  Receipt Date: 20151102
  Transmission Date: 20160304
  Serious: Yes (Hospitalization)
  Sender: FDA-Public Use
  Company Number: US-BIOGENIDEC-2015BI145356

PATIENT
  Age: 45 Year
  Sex: Female

DRUGS (19)
  1. VITAMIN D3 [Concomitant]
     Active Substance: CHOLECALCIFEROL
     Dates: start: 20150523
  2. ZONISAMIDE. [Concomitant]
     Active Substance: ZONISAMIDE
     Dates: start: 20150523
  3. TRAZODONE [Concomitant]
     Active Substance: TRAZODONE HYDROCHLORIDE
     Dates: start: 20140919
  4. WELLBUTRIN [Concomitant]
     Active Substance: BUPROPION HYDROCHLORIDE
     Dates: start: 20150626
  5. TECFIDERA [Suspect]
     Active Substance: DIMETHYL FUMARATE
     Indication: MULTIPLE SCLEROSIS
     Route: 048
  6. LEVOTHYROXIN SODIUM [Concomitant]
     Dates: start: 20140919
  7. ROXICODONE [Concomitant]
     Active Substance: OXYCODONE HYDROCHLORIDE
     Dates: start: 20140919
  8. IMITREX [Concomitant]
     Active Substance: SUMATRIPTAN\SUMATRIPTAN SUCCINATE
     Dates: start: 20140919
  9. ZOLOFT [Concomitant]
     Active Substance: SERTRALINE HYDROCHLORIDE
     Dates: start: 20140919
  10. PROVIGIL [Concomitant]
     Active Substance: MODAFINIL
     Dates: start: 20140919
  11. VITAMIN B12 ER [Concomitant]
     Dates: start: 20150523
  12. XANAX [Concomitant]
     Active Substance: ALPRAZOLAM
     Dates: start: 20150523
  13. MS CONTIN [Concomitant]
     Active Substance: MORPHINE SULFATE
     Dates: start: 20140919
  14. FISH OIL [Concomitant]
     Active Substance: FISH OIL
     Dates: start: 20150523
  15. ABILIFY [Concomitant]
     Active Substance: ARIPIPRAZOLE
     Dates: start: 20140919
  16. ATORVASTATIN [Concomitant]
     Active Substance: ATORVASTATIN
     Dates: start: 20150924
  17. MYRBETRIQ [Concomitant]
     Active Substance: MIRABEGRON
     Dates: start: 20140919
  18. PRADAXA [Concomitant]
     Active Substance: DABIGATRAN ETEXILATE MESYLATE
     Dates: start: 20151028
  19. PRIMIDONE. [Concomitant]
     Active Substance: PRIMIDONE
     Dates: start: 20140919

REACTIONS (1)
  - Pulmonary embolism [Recovered/Resolved]

NARRATIVE: CASE EVENT DATE: 20150830
